FAERS Safety Report 11916036 (Version 1)
Quarter: 2016Q1

REPORT INFORMATION
  Report Type: Spontaneous
  Country: GB (occurrence: GB)
  Receive Date: 20160114
  Receipt Date: 20160114
  Transmission Date: 20160526
  Serious: Yes (Disabling)
  Sender: FDA-Public Use
  Company Number: GB-GALDERMA-GB16000079

PATIENT
  Age: 73 Year
  Sex: Female
  Weight: 96 kg

DRUGS (10)
  1. FUROSEMIDE. [Concomitant]
     Active Substance: FUROSEMIDE
     Dates: start: 20150812
  2. DOXYCYCLINE. [Suspect]
     Active Substance: DOXYCYCLINE
     Indication: PRODUCT USED FOR UNKNOWN INDICATION
     Route: 048
     Dates: start: 20151229, end: 20151229
  3. CETRABEN EMOLLIENT CREAM [Concomitant]
     Dates: start: 20140925
  4. BISOPROLOL [Concomitant]
     Active Substance: BISOPROLOL
     Dates: start: 20150812
  5. WARFARIN SODIUM. [Concomitant]
     Active Substance: WARFARIN SODIUM
     Dates: start: 20150812
  6. LOSARTAN. [Concomitant]
     Active Substance: LOSARTAN
     Dates: start: 20150812
  7. ORTHO-GYNEST [Concomitant]
     Dates: start: 20141028
  8. FENBID [Concomitant]
     Active Substance: IBUPROFEN
     Dates: start: 20151204
  9. AMOXICILLIN. [Concomitant]
     Active Substance: AMOXICILLIN
     Dates: start: 20151229
  10. ATORVASTATIN [Concomitant]
     Active Substance: ATORVASTATIN
     Dates: start: 20151204

REACTIONS (4)
  - Pyrexia [Unknown]
  - Presyncope [Unknown]
  - Vomiting [Recovered/Resolved]
  - Circulatory collapse [Unknown]

NARRATIVE: CASE EVENT DATE: 20151229
